FAERS Safety Report 7026335-4 (Version None)
Quarter: 2010Q4

REPORT INFORMATION
  Report Type: 
  Country: None (occurrence: None)
  Receive Date: 20101004
  Receipt Date: 20100928
  Transmission Date: 20110411
  Serious: Yes (Other)
  Sender: FDA-Public Use
  Company Number: EC-PFIZER INC-2010124311

PATIENT
  Age: 24 Year
  Sex: Female

DRUGS (2)
  1. CELEBREX [Suspect]
     Indication: PROCEDURAL PAIN
     Dosage: 200 MG, 2X/DAY
     Route: 048
     Dates: start: 20100928
  2. UNASYN ORAL TABLET [Concomitant]
     Dosage: UNK

REACTIONS (1)
  - SUBARACHNOID HAEMORRHAGE [None]
